FAERS Safety Report 18769145 (Version 1)
Quarter: 2021Q1

REPORT INFORMATION
  Report Type: Spontaneous
  Country: PL (occurrence: PL)
  Receive Date: 20210121
  Receipt Date: 20210121
  Transmission Date: 20210419
  Serious: Yes (Hospitalization)
  Sender: FDA-Public Use
  Company Number: NVSC2021PL008413

PATIENT
  Age: 69 Year
  Sex: Female

DRUGS (2)
  1. LETROZOLE. [Suspect]
     Active Substance: LETROZOLE
     Indication: BREAST CANCER
     Dosage: 2.5 MG, QD
     Route: 065
  2. KISQALI [Suspect]
     Active Substance: RIBOCICLIB
     Indication: BREAST CANCER
     Dosage: 600 MG, QD (FOR 21 DAYS THEN A 7 DAY BREAK)
     Route: 065
     Dates: start: 20191120

REACTIONS (8)
  - Lymphadenopathy [Unknown]
  - Renal failure [Recovering/Resolving]
  - Condition aggravated [Recovering/Resolving]
  - Bone pain [Recovering/Resolving]
  - Bone lesion [Recovering/Resolving]
  - Cardiovascular insufficiency [Recovering/Resolving]
  - Blood creatinine increased [Recovering/Resolving]
  - Traumatic lung injury [Recovering/Resolving]

NARRATIVE: CASE EVENT DATE: 202001
